FAERS Safety Report 10155546 (Version 2)
Quarter: 2014Q2

REPORT INFORMATION
  Report Type: Spontaneous
  Country: US (occurrence: US)
  Receive Date: 20140506
  Receipt Date: 20140530
  Transmission Date: 20141212
  Serious: Yes (Death)
  Sender: FDA-Public Use
  Company Number: US-BRISTOL-MYERS SQUIBB COMPANY-20692745

PATIENT
  Age: 70 Year
  Sex: Male

DRUGS (2)
  1. SPRYCEL [Suspect]
     Indication: ACUTE LYMPHOCYTIC LEUKAEMIA
     Dosage: TABLET
     Route: 048
     Dates: start: 20131203, end: 20140401
  2. BOSUTINIB [Suspect]
     Dates: start: 20140401

REACTIONS (1)
  - Myocardial infarction [Fatal]
